FAERS Safety Report 5167726-6 (Version None)
Quarter: 2006Q4

REPORT INFORMATION
  Report Type: 
  Country: None (occurrence: None)
  Receive Date: 20061208
  Receipt Date: 20061129
  Transmission Date: 20070319
  Serious: Yes (Hospitalization)
  Sender: FDA-Public Use
  Company Number: US-KINGPHARMUSA00001-K200601523

PATIENT
  Age: 73 Year
  Sex: Female

DRUGS (13)
  1. ALTACE [Suspect]
     Dosage: 5 MG, QD
     Route: 048
     Dates: start: 20050902, end: 20050907
  2. HYDROCHLOROTHIAZIDE [Suspect]
     Dosage: 12.5 MG, UNK
     Route: 048
     Dates: start: 20050902, end: 20050907
  3. METOPROLOL TARTRATE [Suspect]
     Dosage: 75 MG, QD
     Route: 048
  4. NEXIUM [Suspect]
     Dosage: 20 MG, QD
     Route: 048
  5. VENLAFAXINE HCL [Suspect]
     Dosage: 75 MG, QD
     Route: 048
     Dates: start: 20060902, end: 20050909
  6. TOREM   /01036501/ [Suspect]
     Dosage: 10 MG, QD
     Route: 048
     Dates: end: 20050909
  7. DISALUNIL [Suspect]
     Dosage: 12.5 MG, UNK
     Route: 048
     Dates: start: 20050908, end: 20050909
  8. ACETYLSALICYLIC ACID SRT [Concomitant]
     Dosage: 100 MG, UNK
     Route: 048
  9. GLUCOBAY [Concomitant]
     Dosage: 150 MG, UNK
     Route: 048
  10. ALLOPURINOL [Concomitant]
     Dosage: 100 MG, UNK
     Route: 048
  11. LOCOL [Concomitant]
     Dosage: 80 MG, UNK
     Route: 048
  12. LEVOTHYROXINE                      /00068002/ [Concomitant]
     Dosage: 100 UG, UNK
     Route: 048
  13. CIPROFLOXACIN [Concomitant]
     Dosage: 50 MG, UNK
     Route: 048
     Dates: start: 20050907, end: 20050911

REACTIONS (7)
  - DECREASED ACTIVITY [None]
  - DRUG INTERACTION [None]
  - FATIGUE [None]
  - HYPOKALAEMIA [None]
  - HYPONATRAEMIA [None]
  - HYPOREFLEXIA [None]
  - OEDEMA [None]
